FAERS Safety Report 5308987-X (Version None)
Quarter: 2007Q2

REPORT INFORMATION
  Report Type: 
  Country: None (occurrence: None)
  Receive Date: 20070426
  Receipt Date: 20070416
  Transmission Date: 20071010
  Serious: No
  Sender: FDA-Public Use
  Company Number: US-GENENTECH-240274

PATIENT
  Age: 17 Year
  Sex: Female

DRUGS (1)
  1. NUTROPIN AQ [Suspect]
     Route: 065

REACTIONS (1)
  - BACK PAIN [None]
